FAERS Safety Report 10279064 (Version 1)
Quarter: 2014Q3

REPORT INFORMATION
  Report Type: Spontaneous
  Country: GB (occurrence: GB)
  Receive Date: 20140707
  Receipt Date: 20140707
  Transmission Date: 20150326
  Serious: Yes (Hospitalization)
  Sender: FDA-Public Use
  Company Number: GB-ACCORD-024570

PATIENT
  Age: 67 Year
  Sex: Female

DRUGS (1)
  1. ACCORD SIMVASTATIN [Suspect]
     Active Substance: SIMVASTATIN
     Indication: PRODUCT USED FOR UNKNOWN INDICATION
     Dosage: EACH MORNING

REACTIONS (3)
  - Suicidal ideation [Unknown]
  - Product substitution issue [Unknown]
  - Tremor [Unknown]
